FAERS Safety Report 8954696 (Version 1)
Quarter: 2012Q4

REPORT INFORMATION
  Report Type: 
  Country: DE (occurrence: DE)
  Receive Date: 20121207
  Receipt Date: 20121207
  Transmission Date: 20130627
  Serious: Yes (Death, Life-Threatening, Hospitalization)
  Sender: FDA-Public Use
  Company Number: DE-MYLANLABS-2012S1024475

PATIENT
  Age: 30 Year
  Sex: Male

DRUGS (7)
  1. CLOZAPINE [Suspect]
     Indication: SCHIZOPHRENIA
     Dosage: 12.5-250 mg
     Route: 048
     Dates: start: 201204, end: 20120615
  2. CLOZAPINE [Suspect]
     Indication: SCHIZOPHRENIA
     Dosage: daily dose: 300 Mg milligram(s) every Day
     Route: 048
     Dates: start: 20120616, end: 20120703
  3. CLOZAPINE [Suspect]
     Indication: SCHIZOPHRENIA
     Dosage: daily dose: 500 Mg milligram(s) every Day
     Route: 048
     Dates: start: 20120704, end: 20120920
  4. METFORMIN [Suspect]
     Indication: WEIGHT INCREASED
     Dosage: daily dose: 2000 Mg milligram(s) every Day
     Route: 048
     Dates: start: 20120704, end: 20120920
  5. OLANZAPINE [Concomitant]
     Indication: PRODUCT USED FOR UNKNOWN INDICATION
  6. AMISULPRIDE [Concomitant]
     Indication: PRODUCT USED FOR UNKNOWN INDICATION
  7. AMISULPRIDE [Concomitant]
     Indication: PRODUCT USED FOR UNKNOWN INDICATION

REACTIONS (7)
  - Cardiac arrest [Fatal]
  - Confusional state [Unknown]
  - Brain injury [Not Recovered/Not Resolved]
  - Weight increased [Unknown]
  - Off label use [Not Recovered/Not Resolved]
  - Lactic acidosis [Not Recovered/Not Resolved]
  - Faecaloma [Not Recovered/Not Resolved]
